FAERS Safety Report 8455633-2 (Version None)
Quarter: 2012Q2

REPORT INFORMATION
  Report Type: 
  Country: None (occurrence: None)
  Receive Date: 20120621
  Receipt Date: 20120618
  Transmission Date: 20120825
  Serious: Yes (Death, Life-Threatening, Hospitalization, Other)
  Sender: FDA-Public Use
  Company Number: US-CELGENEUS-163-21880-12062676

PATIENT
  Sex: Male

DRUGS (2)
  1. REVLIMID [Suspect]
     Indication: MULTIPLE MYELOMA
     Dosage: 10 MILLIGRAM
     Route: 048
     Dates: start: 20110310
  2. STEROIDS [Concomitant]
     Route: 048

REACTIONS (4)
  - MULTIPLE MYELOMA [None]
  - BLOOD GLUCOSE INCREASED [None]
  - RENAL FAILURE [None]
  - DEMENTIA [None]
